FAERS Safety Report 10681791 (Version 1)
Quarter: 2014Q4

REPORT INFORMATION
  Report Type: Spontaneous
  Country: HR (occurrence: HR)
  Receive Date: 20141230
  Receipt Date: 20141230
  Transmission Date: 20150529
  Serious: Yes (Hospitalization)
  Sender: FDA-Public Use
  Company Number: HR-TEVA-531380ISR

PATIENT
  Age: 40 Year
  Sex: Male
  Weight: 87 kg

DRUGS (4)
  1. FLUOROURACIL PLIVA 500 MG/10 ML [Suspect]
     Active Substance: FLUOROURACIL
     Indication: GASTRIC CANCER
     Route: 042
     Dates: start: 20141103, end: 20141107
  2. REGLAN [Concomitant]
     Active Substance: METOCLOPRAMIDE HYDROCHLORIDE
     Indication: PREMEDICATION
     Route: 042
  3. DEKSAMETAZON SANDOZ 4 MG/ML [Concomitant]
     Indication: PREMEDICATION
     Route: 042
  4. CALCIUM FOLINATE [Suspect]
     Active Substance: LEUCOVORIN CALCIUM
     Indication: GASTRIC CANCER
     Route: 042
     Dates: start: 20141103, end: 20141107

REACTIONS (2)
  - Febrile neutropenia [Recovered/Resolved]
  - Aphthous stomatitis [Recovered/Resolved]

NARRATIVE: CASE EVENT DATE: 20141109
